FAERS Safety Report 8222537-X (Version None)
Quarter: 2012Q1

REPORT INFORMATION
  Report Type: 
  Country: None (occurrence: None)
  Receive Date: 20120320
  Receipt Date: 20120314
  Transmission Date: 20120608
  Serious: No
  Sender: FDA-Public Use
  Company Number: US-PFIZER INC-2012068504

PATIENT

DRUGS (1)
  1. ZOLOFT [Suspect]
     Dosage: 100 MG, 1X/DAY

REACTIONS (1)
  - MENTAL DISORDER [None]
